FAERS Safety Report 7396410-3 (Version None)
Quarter: 2011Q2

REPORT INFORMATION
  Report Type: 
  Country: None (occurrence: None)
  Receive Date: 20110406
  Receipt Date: 20110404
  Transmission Date: 20111010
  Serious: Yes (Other)
  Sender: FDA-Public Use
  Company Number: US-CEPHALON-US022626

PATIENT
  Sex: Female

DRUGS (2)
  1. FENTORA [Suspect]
     Indication: FIBROMYALGIA
     Route: 002
  2. METHADONE HCL [Concomitant]
     Route: 065

REACTIONS (2)
  - DRUG DEPENDENCE [None]
  - ABNORMAL BEHAVIOUR [None]
